FAERS Safety Report 6691948-6 (Version None)
Quarter: 2010Q2

REPORT INFORMATION
  Report Type: 
  Country: None (occurrence: None)
  Receive Date: 20100422
  Receipt Date: 20090309
  Transmission Date: 20101027
  Serious: No
  Sender: FDA-Public Use
  Company Number: US-ASTRAZENECA-2009UW06209

PATIENT
  Sex: Female

DRUGS (3)
  1. METOPROLOL TARTRATE [Suspect]
     Indication: HYPERTENSION
     Route: 048
  2. METOPROLOL TARTRATE [Suspect]
     Indication: HEART RATE INCREASED
     Route: 048
  3. METOPROLOL TARTRATE [Suspect]
     Indication: PALPITATIONS
     Route: 048

REACTIONS (3)
  - BLOOD PRESSURE INCREASED [None]
  - PAIN IN EXTREMITY [None]
  - PALPITATIONS [None]
